FAERS Safety Report 7364524-X (Version None)
Quarter: 2011Q1

REPORT INFORMATION
  Report Type: 
  Country: None (occurrence: None)
  Receive Date: 20110321
  Receipt Date: 20110316
  Transmission Date: 20110831
  Serious: Yes (Hospitalization)
  Sender: FDA-Public Use
  Company Number: JP-MERCK-1103USA01261

PATIENT
  Age: 77 Year
  Sex: Male

DRUGS (10)
  1. NORVASC [Concomitant]
     Indication: HYPERTENSION
     Route: 048
  2. LASIX [Concomitant]
     Route: 048
  3. FLUITRAN [Concomitant]
     Route: 048
  4. HALCION [Concomitant]
     Route: 048
  5. DEPAS [Concomitant]
     Route: 048
  6. KREMEZIN [Concomitant]
     Route: 048
  7. ASPIRIN [Concomitant]
     Route: 048
  8. BLOPRESS [Concomitant]
     Indication: HYPERTENSION
     Route: 048
  9. ANPLAG [Concomitant]
     Route: 048
  10. JANUVIA [Suspect]
     Indication: HYPERGLYCAEMIA
     Route: 048

REACTIONS (1)
  - RENAL IMPAIRMENT [None]
